FAERS Safety Report 13105862 (Version 1)
Quarter: 2017Q1

REPORT INFORMATION
  Report Type: Spontaneous
  Country: BE (occurrence: BE)
  Receive Date: 20170111
  Receipt Date: 20170111
  Transmission Date: 20170428
  Serious: Yes (Hospitalization)
  Sender: FDA-Public Use
  Company Number: BE-PFIZER INC-2017001999

PATIENT
  Age: 43 Year
  Weight: 103 kg

DRUGS (15)
  1. ASAFLOW [Concomitant]
     Active Substance: ASPIRIN
     Dosage: 160 MG, 1X/DAY
  2. METFORMINE MYLAN [Concomitant]
     Active Substance: METFORMIN HYDROCHLORIDE
     Dosage: 1700 MG, 850 MG AT NOON, 850 MG IN THE EVENING
     Dates: start: 2012
  3. XEPLION [Concomitant]
     Active Substance: PALIPERIDONE PALMITATE
     Dosage: 1 UNKNOWN
  4. ETUMINE [Concomitant]
     Active Substance: CLOTHIAPINE
     Dosage: 40 MG, 1X/DAY
  5. SOLIAN [Concomitant]
     Active Substance: AMISULPRIDE
     Dosage: 200 MG, 2X/DAY
  6. TRANXENE T-TAB [Concomitant]
     Active Substance: CLORAZEPATE DIPOTASSIUM
     Dosage: 0.5 MG, 4X/DAY
  7. MOVICOL [Concomitant]
     Active Substance: POLYETHYLENE GLYCOL 3350\POTASSIUM CHLORIDE\SODIUM BICARBONATE\SODIUM CHLORIDE
     Dosage: 13.7 UNK
  8. LIPITOR [Concomitant]
     Active Substance: ATORVASTATIN CALCIUM
     Dosage: 40 MG, 1X/DAY
     Dates: start: 2014
  9. DIPIPERON [Concomitant]
     Active Substance: PIPAMPERONE
     Dosage: 120 MG, 40 MG IN THE MORNING, 40 MG AT NOON, 40 MG IN THE EVENING
  10. EFFEXOR XR [Suspect]
     Active Substance: VENLAFAXINE HYDROCHLORIDE
     Dosage: 225 MG DAILY, 150 MG IN THE MORNING AND 75 MG AT NOON
     Dates: start: 2014, end: 20161218
  11. SEROQUEL [Concomitant]
     Active Substance: QUETIAPINE FUMARATE
     Dosage: 1400 MG, 500 MG IN THE MORNING, 500 MG AT NOON, AND 400 MG IN THE EVENING
  12. D-CURE [Concomitant]
     Dosage: 1 UNKNOWN
  13. DOMINAL /00002701/ [Concomitant]
     Active Substance: ASPIRIN
     Dosage: 80 MG, 1X/DAY
  14. LIPANTHYLNANO [Concomitant]
     Active Substance: FENOFIBRATE
     Dosage: 145 MG, 1X/DAY
  15. AMOXICILLINE /00249602/ [Concomitant]
     Active Substance: AMOXICILLIN
     Dosage: 1 UNK, 3X/DAY

REACTIONS (6)
  - Body temperature increased [Recovering/Resolving]
  - Eosinophilic pneumonia [Recovering/Resolving]
  - Hypoxia [Recovering/Resolving]
  - Dyspnoea [Recovering/Resolving]
  - Hepatitis [Recovering/Resolving]
  - Renal failure [Recovering/Resolving]
